FAERS Safety Report 4715644-7 (Version None)
Quarter: 2005Q3

REPORT INFORMATION
  Report Type: 
  Country: None (occurrence: None)
  Receive Date: 20050718
  Receipt Date: 20050624
  Transmission Date: 20060218
  Serious: Yes (Hospitalization)
  Sender: FDA-Public Use
  Company Number: 2005PK01103

PATIENT
  Age: 24 Year
  Sex: Male

DRUGS (8)
  1. SEROQUEL [Suspect]
     Route: 048
     Dates: start: 20041008, end: 20041012
  2. SEROQUEL [Suspect]
     Route: 048
     Dates: start: 20041013, end: 20041018
  3. SEROQUEL [Suspect]
     Route: 048
     Dates: start: 20041019, end: 20041109
  4. SEROQUEL [Suspect]
     Route: 048
     Dates: start: 20041110, end: 20041122
  5. SEROQUEL [Suspect]
     Route: 048
     Dates: start: 20041123, end: 20041129
  6. SEROQUEL [Suspect]
     Route: 048
     Dates: start: 20041130
  7. ABILIFY [Suspect]
     Route: 048
     Dates: start: 20041122, end: 20041230
  8. ABILIFY [Suspect]
     Route: 048
     Dates: start: 20041231

REACTIONS (2)
  - DRUG INTERACTION [None]
  - ERECTILE DYSFUNCTION [None]
